FAERS Safety Report 7410669-5 (Version None)
Quarter: 2011Q1

REPORT INFORMATION
  Report Type: 
  Country: None (occurrence: None)
  Receive Date: 20110302
  Receipt Date: 20110119
  Transmission Date: 20110831
  Serious: No
  Sender: FDA-Public Use
  Company Number: 025840

PATIENT
  Sex: Female
  Weight: 81.6475 kg

DRUGS (4)
  1. CIMZIA [Suspect]
     Indication: CROHN'S DISEASE
     Dosage: 400 MG 1X/4 WEEKS SUBCUTANEOUS
     Route: 058
     Dates: start: 20100101
  2. IRON [Concomitant]
  3. MESALAMINE [Concomitant]
  4. FOLIC ACID [Concomitant]

REACTIONS (4)
  - CYSTITIS [None]
  - ARTHRALGIA [None]
  - WEIGHT INCREASED [None]
  - KIDNEY INFECTION [None]
